FAERS Safety Report 10453191 (Version 10)
Quarter: 2017Q4

REPORT INFORMATION
  Report Type: Report from Study
  Country: US (occurrence: US)
  Receive Date: 20140915
  Receipt Date: 20171025
  Transmission Date: 20180320
  Serious: Yes (Hospitalization, Other)
  Sender: FDA-Public Use
  Company Number: US-SA-2013SA095687

PATIENT
  Age: 68 Year
  Sex: Female
  Weight: 44.45 kg

DRUGS (39)
  1. AUBAGIO [Suspect]
     Active Substance: TERIFLUNOMIDE
     Indication: MULTIPLE SCLEROSIS
     Route: 048
     Dates: start: 20130914, end: 20140115
  2. AUBAGIO [Suspect]
     Active Substance: TERIFLUNOMIDE
     Indication: MULTIPLE SCLEROSIS
     Route: 048
     Dates: start: 2014, end: 2015
  3. AUBAGIO [Suspect]
     Active Substance: TERIFLUNOMIDE
     Indication: RELAPSING-REMITTING MULTIPLE SCLEROSIS
     Route: 048
     Dates: start: 2014, end: 2015
  4. AUBAGIO [Suspect]
     Active Substance: TERIFLUNOMIDE
     Indication: RELAPSING-REMITTING MULTIPLE SCLEROSIS
     Route: 048
     Dates: start: 20130914, end: 20140115
  5. CILOSTAZOL. [Concomitant]
     Active Substance: CILOSTAZOL
  6. PROTONIX [Concomitant]
     Active Substance: PANTOPRAZOLE SODIUM
     Dosage: 20 MG
  7. AUBAGIO [Suspect]
     Active Substance: TERIFLUNOMIDE
     Indication: MULTIPLE SCLEROSIS
     Route: 048
     Dates: start: 2015
  8. CELEBREX [Suspect]
     Active Substance: CELECOXIB
     Route: 065
     Dates: start: 20171005
  9. BACLOFEN. [Concomitant]
     Active Substance: BACLOFEN
  10. VITAMIN D3 [Concomitant]
     Active Substance: CHOLECALCIFEROL
     Route: 065
  11. AUBAGIO [Suspect]
     Active Substance: TERIFLUNOMIDE
     Indication: MULTIPLE SCLEROSIS
     Route: 048
     Dates: start: 2014
  12. AUBAGIO [Suspect]
     Active Substance: TERIFLUNOMIDE
     Indication: MULTIPLE SCLEROSIS
     Route: 048
     Dates: start: 20130914, end: 20140115
  13. PREDNISONE. [Concomitant]
     Active Substance: PREDNISONE
  14. NAPROXEN. [Concomitant]
     Active Substance: NAPROXEN
  15. TYLENOL [Concomitant]
     Active Substance: ACETAMINOPHEN
  16. AUBAGIO [Suspect]
     Active Substance: TERIFLUNOMIDE
     Indication: RELAPSING-REMITTING MULTIPLE SCLEROSIS
     Route: 048
     Dates: start: 20130914, end: 20140115
  17. AUBAGIO [Suspect]
     Active Substance: TERIFLUNOMIDE
     Indication: RELAPSING-REMITTING MULTIPLE SCLEROSIS
     Route: 048
     Dates: start: 2014
  18. GABAPENTIN. [Concomitant]
     Active Substance: GABAPENTIN
     Indication: HEADACHE
     Dates: start: 20121101
  19. ALENDRONATE [Concomitant]
     Active Substance: ALENDRONATE SODIUM
     Indication: BONE LOSS
     Dates: start: 2011
  20. AMITRIPTYLIN [Concomitant]
     Active Substance: AMITRIPTYLINE
     Dosage: 100 MG
  21. MECLIZINE [Concomitant]
     Active Substance: MECLIZINE HYDROCHLORIDE
  22. LYRICA [Concomitant]
     Active Substance: PREGABALIN
     Dates: start: 201512
  23. HYDROCODONE [Concomitant]
     Active Substance: HYDROCODONE
     Route: 065
  24. AUBAGIO [Suspect]
     Active Substance: TERIFLUNOMIDE
     Indication: MULTIPLE SCLEROSIS
     Route: 048
     Dates: start: 20141027
  25. AUBAGIO [Suspect]
     Active Substance: TERIFLUNOMIDE
     Indication: RELAPSING-REMITTING MULTIPLE SCLEROSIS
     Route: 048
     Dates: start: 20130914, end: 20140115
  26. ALEVE [Concomitant]
     Active Substance: NAPROXEN SODIUM
  27. AUBAGIO [Suspect]
     Active Substance: TERIFLUNOMIDE
     Indication: RELAPSING-REMITTING MULTIPLE SCLEROSIS
     Route: 048
     Dates: start: 2015
  28. DYMISTA [Concomitant]
     Active Substance: AZELASTINE HYDROCHLORIDE\FLUTICASONE PROPIONATE
  29. DYMISTA [Concomitant]
     Active Substance: AZELASTINE HYDROCHLORIDE\FLUTICASONE PROPIONATE
     Indication: HYPERSENSITIVITY
  30. DYMISTA [Concomitant]
     Active Substance: AZELASTINE HYDROCHLORIDE\FLUTICASONE PROPIONATE
     Indication: SINUS CONGESTION
  31. NEURONTIN [Concomitant]
     Active Substance: GABAPENTIN
  32. VITAMIN D [Concomitant]
     Active Substance: CHOLECALCIFEROL
     Indication: BONE LOSS
     Dates: start: 20121101
  33. AUBAGIO [Suspect]
     Active Substance: TERIFLUNOMIDE
     Indication: MULTIPLE SCLEROSIS
     Route: 048
     Dates: start: 20130914, end: 20140115
  34. AUBAGIO [Suspect]
     Active Substance: TERIFLUNOMIDE
     Indication: RELAPSING-REMITTING MULTIPLE SCLEROSIS
     Route: 048
     Dates: start: 20141027
  35. MIRTAZAPINE. [Suspect]
     Active Substance: MIRTAZAPINE
     Route: 065
  36. MELOXICAM. [Concomitant]
     Active Substance: MELOXICAM
  37. ASPIRIN. [Concomitant]
     Active Substance: ASPIRIN
     Dates: start: 2011
  38. SYNTHROID [Concomitant]
     Active Substance: LEVOTHYROXINE SODIUM
  39. AMPYRA [Concomitant]
     Active Substance: DALFAMPRIDINE
     Dates: start: 2015

REACTIONS (65)
  - Rhinorrhoea [Not Recovered/Not Resolved]
  - Upper respiratory tract infection [Not Recovered/Not Resolved]
  - Cough [Not Recovered/Not Resolved]
  - Choking sensation [Unknown]
  - Dizziness [Unknown]
  - Ocular vascular disorder [Recovered/Resolved]
  - Sleep disorder [Not Recovered/Not Resolved]
  - Chronic obstructive pulmonary disease [Unknown]
  - Peripheral swelling [Unknown]
  - Head discomfort [Not Recovered/Not Resolved]
  - Cough [Unknown]
  - Weight fluctuation [Unknown]
  - Gastrointestinal sounds abnormal [Recovering/Resolving]
  - Weight decreased [Unknown]
  - Tachycardia [Unknown]
  - Sensation of foreign body [Unknown]
  - Vertigo [Unknown]
  - Dysphonia [Unknown]
  - Visual impairment [Not Recovered/Not Resolved]
  - Joint injury [Unknown]
  - Alopecia [Recovered/Resolved]
  - Condition aggravated [Not Recovered/Not Resolved]
  - Pneumonia [Unknown]
  - Abdominal mass [Unknown]
  - Hypersensitivity [Unknown]
  - Eye disorder [Not Recovered/Not Resolved]
  - Ear discomfort [Not Recovered/Not Resolved]
  - Weight increased [Unknown]
  - Pain [Unknown]
  - Pain in extremity [Unknown]
  - Arthralgia [Unknown]
  - Musculoskeletal discomfort [Not Recovered/Not Resolved]
  - Limb discomfort [Not Recovered/Not Resolved]
  - Derealisation [Unknown]
  - Candida infection [Unknown]
  - Sinusitis [Unknown]
  - Rhinorrhoea [Unknown]
  - Feeling of body temperature change [Unknown]
  - Fall [Unknown]
  - Influenza [Unknown]
  - Drug dose omission [Unknown]
  - Road traffic accident [Unknown]
  - Cataract [Unknown]
  - Tremor [Unknown]
  - Diarrhoea [Recovered/Resolved]
  - Loss of personal independence in daily activities [Unknown]
  - Bronchitis [Unknown]
  - Nephrolithiasis [Unknown]
  - Skin discolouration [Unknown]
  - Laceration [Unknown]
  - Blood cholesterol increased [Unknown]
  - Back pain [Not Recovered/Not Resolved]
  - Sneezing [Unknown]
  - Sleep disorder [Unknown]
  - Weight decreased [Recovering/Resolving]
  - Grip strength decreased [Unknown]
  - Pain in extremity [Not Recovered/Not Resolved]
  - Auditory disorder [Not Recovered/Not Resolved]
  - Respiratory tract infection [Not Recovered/Not Resolved]
  - Diplopia [Unknown]
  - Gait disturbance [Recovering/Resolving]
  - Nasal congestion [Unknown]
  - Visual impairment [Not Recovered/Not Resolved]
  - Pelvic mass [Unknown]
  - Pruritus [Unknown]

NARRATIVE: CASE EVENT DATE: 2013
